FAERS Safety Report 13704988 (Version 1)
Quarter: 2017Q2

REPORT INFORMATION
  Report Type: Spontaneous
  Country: US (occurrence: US)
  Receive Date: 20170629
  Receipt Date: 20170629
  Transmission Date: 20170830
  Serious: Yes (Hospitalization)
  Sender: FDA-Public Use
  Company Number: None

PATIENT
  Age: 68 Year
  Sex: Male

DRUGS (1)
  1. EXJADE [Suspect]
     Active Substance: DEFERASIROX
     Indication: MYELOFIBROSIS
     Dosage: 100MG ONCE DAILY BY MOUTH
     Route: 048
     Dates: start: 20170329

REACTIONS (4)
  - Vascular graft complication [None]
  - Hallucination [None]
  - Pyrexia [None]
  - Graft infection [None]

NARRATIVE: CASE EVENT DATE: 20170201
